FAERS Safety Report 7096891-9 (Version None)
Quarter: 2010Q4

REPORT INFORMATION
  Report Type: 
  Country: None (occurrence: None)
  Receive Date: 20101111
  Receipt Date: 20101104
  Transmission Date: 20110411
  Serious: Yes (Disabling)
  Sender: FDA-Public Use
  Company Number: ES-ABBOTT-10P-144-0683288-00

PATIENT
  Age: 28 Year
  Sex: Female

DRUGS (2)
  1. HUMIRA [Suspect]
     Indication: CROHN'S DISEASE
     Route: 058
     Dates: start: 20081001, end: 20100721
  2. 6-MERCAPTOPURINE [Concomitant]
     Indication: CROHN'S DISEASE
     Dates: start: 20050101

REACTIONS (2)
  - BRACHIAL PLEXOPATHY [None]
  - HERPES ZOSTER [None]
